FAERS Safety Report 18015894 (Version 36)
Quarter: 2025Q2

REPORT INFORMATION
  Report Type: Report from Study
  Country: US (occurrence: US)
  Receive Date: 20200713
  Receipt Date: 20250623
  Transmission Date: 20250716
  Serious: Yes (Hospitalization, Other)
  Sender: TAKEDA
  Company Number: US-SHIRE-US202022294

PATIENT
  Age: 74 Year
  Sex: Female
  Weight: 100 kg

DRUGS (39)
  1. HUMAN IMMUNOGLOBULIN G [Suspect]
     Active Substance: HUMAN IMMUNOGLOBULIN G
     Indication: Primary immunodeficiency syndrome
     Dosage: 40 GRAM, Q4WEEKS
  2. HUMAN IMMUNOGLOBULIN G [Suspect]
     Active Substance: HUMAN IMMUNOGLOBULIN G
     Indication: Immunodeficiency common variable
  3. HUMAN IMMUNOGLOBULIN G [Suspect]
     Active Substance: HUMAN IMMUNOGLOBULIN G
     Dosage: 40 GRAM, MONTHLY
  4. HUMAN IMMUNOGLOBULIN G [Suspect]
     Active Substance: HUMAN IMMUNOGLOBULIN G
  5. HUMAN IMMUNOGLOBULIN G [Suspect]
     Active Substance: HUMAN IMMUNOGLOBULIN G
     Dosage: 40 GRAM, Q4WEEKS
  6. LOSARTAN AND HYDROCHLOROTHIAZIDE [Concomitant]
     Active Substance: HYDROCHLOROTHIAZIDE\LOSARTAN POTASSIUM
  7. Diltiazem 12hr [Concomitant]
  8. ACETAMINOPHEN [Concomitant]
     Active Substance: ACETAMINOPHEN
  9. DIPHENHYDRAMINE [Concomitant]
     Active Substance: DIPHENHYDRAMINE
  10. SODIUM CHLORIDE [Concomitant]
     Active Substance: SODIUM CHLORIDE
  11. EPINEPHRINE [Concomitant]
     Active Substance: EPINEPHRINE
  12. ARMOUR THYROID [Concomitant]
     Active Substance: THYROID, PORCINE
  13. VITAMIN D2 [Concomitant]
     Active Substance: ERGOCALCIFEROL
  14. PYRIDOXINE HYDROCHLORIDE [Concomitant]
     Active Substance: PYRIDOXINE HYDROCHLORIDE
  15. PROGESTERONE [Concomitant]
     Active Substance: PROGESTERONE
  16. HYDROCHLOROTHIAZIDE [Concomitant]
     Active Substance: HYDROCHLOROTHIAZIDE
  17. SPIRONOLACTONE [Concomitant]
     Active Substance: SPIRONOLACTONE
  18. ASPIRIN [Concomitant]
     Active Substance: ASPIRIN
  19. ROSUVASTATIN CALCIUM [Concomitant]
     Active Substance: ROSUVASTATIN CALCIUM
  20. FINASTERIDE [Concomitant]
     Active Substance: FINASTERIDE
  21. ALBUTEROL\IPRATROPIUM [Concomitant]
     Active Substance: ALBUTEROL\IPRATROPIUM
  22. ZYRTEC [Concomitant]
     Active Substance: CETIRIZINE HYDROCHLORIDE
  23. RANITIDINE [Concomitant]
     Active Substance: RANITIDINE
  24. PRASTERONE [Concomitant]
     Active Substance: PRASTERONE
  25. HERBALS\TURMERIC [Concomitant]
     Active Substance: HERBALS\TURMERIC
  26. KETOCONAZOLE [Concomitant]
     Active Substance: KETOCONAZOLE
  27. IODINE [Concomitant]
     Active Substance: IODINE
  28. BIOTIN [Concomitant]
     Active Substance: BIOTIN
  29. POTASSIUM CHLORIDE [Concomitant]
     Active Substance: POTASSIUM CHLORIDE
  30. TESTOSTERONE [Concomitant]
     Active Substance: TESTOSTERONE
  31. HYDROCHLOROTHIAZIDE [Concomitant]
     Active Substance: HYDROCHLOROTHIAZIDE
  32. Calcium Magnesium Zinc Vitamin D3 [Concomitant]
  33. VITAMIN D [Concomitant]
     Active Substance: VITAMIN D NOS
  34. VITAMIN C [Concomitant]
     Active Substance: ASCORBIC ACID
  35. IVERMECTIN [Concomitant]
     Active Substance: IVERMECTIN
  36. DOXYCYCLINE HYCLATE [Concomitant]
     Active Substance: DOXYCYCLINE HYCLATE
  37. CLOPIDOGREL [Concomitant]
     Active Substance: CLOPIDOGREL BISULFATE
  38. DIPHENHYDRAMINE HYDROCHLORIDE [Concomitant]
     Active Substance: DIPHENHYDRAMINE HYDROCHLORIDE
  39. LACTOBACILLUS ACIDOPHILUS [Concomitant]
     Active Substance: LACTOBACILLUS ACIDOPHILUS

REACTIONS (56)
  - Epstein-Barr virus infection [Unknown]
  - Lyme disease [Unknown]
  - Breast cancer stage I [Unknown]
  - Urinary tract infection [Recovered/Resolved]
  - Autoimmune thyroiditis [Unknown]
  - Diabetes mellitus [Unknown]
  - Cancer cells present [Unknown]
  - Arterial occlusive disease [Unknown]
  - Heart rate increased [Unknown]
  - Thrombosis [Unknown]
  - Contusion [Unknown]
  - Blood pressure increased [Unknown]
  - Neuropathy peripheral [Unknown]
  - Temperature intolerance [Not Recovered/Not Resolved]
  - Protein total increased [Unknown]
  - Inappropriate schedule of product administration [Unknown]
  - Catheter site discharge [Unknown]
  - Product administration error [Unknown]
  - Dehydration [Unknown]
  - Haematocrit increased [Unknown]
  - Fibrin D dimer increased [Unknown]
  - Hormone level abnormal [Unknown]
  - COVID-19 [Recovered/Resolved]
  - Bronchitis [Unknown]
  - Oral herpes [Unknown]
  - Alopecia [Unknown]
  - Post-acute COVID-19 syndrome [Unknown]
  - Electrocardiogram abnormal [Unknown]
  - Multiple allergies [Unknown]
  - White blood cell count increased [Recovering/Resolving]
  - Hordeolum [Unknown]
  - Vaginal haemorrhage [Unknown]
  - Arthritis [Unknown]
  - Head injury [Unknown]
  - Uterine polyp [Unknown]
  - Uterine enlargement [Unknown]
  - Implant site pain [Unknown]
  - Cystitis [Unknown]
  - Neck pain [Unknown]
  - Blood glucose increased [Unknown]
  - Bursitis [Unknown]
  - Supraventricular tachycardia [Unknown]
  - Spinal pain [Unknown]
  - Wound [Unknown]
  - Skin injury [Unknown]
  - Dermatitis contact [Unknown]
  - Asthenia [Unknown]
  - Balance disorder [Unknown]
  - Tremor [Recovered/Resolved]
  - Arthralgia [Unknown]
  - Pain [Unknown]
  - Back pain [Unknown]
  - Fatigue [Not Recovered/Not Resolved]
  - Thyroiditis [Unknown]
  - Fall [Unknown]
  - Respiratory tract infection [Unknown]

NARRATIVE: CASE EVENT DATE: 20220401
